FAERS Safety Report 17140912 (Version 1)
Quarter: 2019Q4

REPORT INFORMATION
  Report Type: Spontaneous
  Country: US (occurrence: US)
  Receive Date: 20191211
  Receipt Date: 20191211
  Transmission Date: 20200122
  Serious: No
  Sender: FDA-Public Use
  Company Number: US-ASTRAZENECA-2019SF61610

PATIENT
  Age: 48 Year
  Sex: Female
  Weight: 69.9 kg

DRUGS (3)
  1. FASLODEX [Suspect]
     Active Substance: FULVESTRANT
     Indication: BREAST CANCER METASTATIC
     Dosage: 100 MG DAYS 1-21 OF 28 DAYS
     Route: 030
     Dates: start: 201810
  2. IBRANCE [Suspect]
     Active Substance: PALBOCICLIB
     Route: 048
  3. ZOMETA [Concomitant]
     Active Substance: ZOLEDRONIC ACID

REACTIONS (19)
  - Chest pain [Unknown]
  - Tinnitus [Unknown]
  - Dyspnoea [Unknown]
  - Decreased appetite [Unknown]
  - Weight increased [Unknown]
  - Dry mouth [Unknown]
  - Pruritus [Unknown]
  - Vision blurred [Unknown]
  - Drug ineffective [Unknown]
  - Headache [Unknown]
  - Fatigue [Unknown]
  - Muscle spasms [Unknown]
  - Anxiety [Unknown]
  - Micturition urgency [Unknown]
  - Nausea [Unknown]
  - Malaise [Unknown]
  - Cough [Unknown]
  - Pulse abnormal [Unknown]
  - Bone pain [Unknown]
